FAERS Safety Report 4421755-6 (Version None)
Quarter: 2004Q3

REPORT INFORMATION
  Report Type: 
  Country: None (occurrence: None)
  Receive Date: 20040806
  Receipt Date: 20040719
  Transmission Date: 20050211
  Serious: Yes (Other)
  Sender: FDA-Public Use
  Company Number: USA031049346

PATIENT
  Age: 71 Year
  Sex: Female

DRUGS (2)
  1. ZYPREXA [Suspect]
     Indication: AGITATION
     Dosage: 7.5 MG DAY
     Route: 048
  2. COUMADIN [Concomitant]

REACTIONS (5)
  - AGITATION [None]
  - DISEASE RECURRENCE [None]
  - DIZZINESS [None]
  - DRUG INTOLERANCE [None]
  - LEUKOCYTOCLASTIC VASCULITIS [None]
